FAERS Safety Report 8820159 (Version 2)
Quarter: 2012Q4

REPORT INFORMATION
  Report Type: 
  Country: US (occurrence: US)
  Receive Date: 20121001
  Receipt Date: 20121022
  Transmission Date: 20130627
  Serious: No
  Sender: FDA-Public Use
  Company Number: US-PFIZER INC-2012240013

PATIENT
  Age: 59 Year
  Sex: Female
  Weight: 63.9 kg

DRUGS (4)
  1. DETROL LA [Suspect]
     Indication: HYPERTONIC BLADDER
     Dosage: 4 mg, 1x/day
     Route: 048
  2. CALCIUM CARBONATE/COLECALCIFEROL [Concomitant]
     Dosage: UNK
  3. CENTRUM SILVER [Concomitant]
     Dosage: UNK
  4. FENOFIBRATE [Concomitant]
     Dosage: UNK

REACTIONS (1)
  - Drug ineffective [Unknown]
